FAERS Safety Report 6405731-X (Version None)
Quarter: 2009Q4

REPORT INFORMATION
  Report Type: 
  Country: None (occurrence: None)
  Receive Date: 20091014
  Receipt Date: 20091001
  Transmission Date: 20100525
  Serious: Yes (Hospitalization)
  Sender: FDA-Public Use
  Company Number: 238562K09USA

PATIENT
  Age: 46 Year
  Sex: Female

DRUGS (5)
  1. REBIF [Suspect]
     Indication: MULTIPLE SCLEROSIS
     Dosage: 44 MCG, 3 IN 1 WEEKS, SUBCUTANEOUS
     Route: 058
     Dates: start: 20090629
  2. DIOVAN [Concomitant]
  3. FOLIC ACID [Concomitant]
  4. GABAPENTIN [Concomitant]
  5. BACLOFEN [Concomitant]

REACTIONS (8)
  - ASTHENIA [None]
  - BLOOD TEST ABNORMAL [None]
  - CONDITION AGGRAVATED [None]
  - FALL [None]
  - LACERATION [None]
  - SKIN INFECTION [None]
  - STASIS DERMATITIS [None]
  - WHITE BLOOD CELL COUNT DECREASED [None]
